FAERS Safety Report 16759301 (Version 2)
Quarter: 2019Q4

REPORT INFORMATION
  Report Type: Spontaneous
  Country: US (occurrence: US)
  Receive Date: 20190830
  Receipt Date: 20191003
  Transmission Date: 20200122
  Serious: Yes (Other)
  Sender: FDA-Public Use
  Company Number: US-KALA PHARAMACEUTICALS-2019KLA00033

PATIENT
  Age: 80 Year
  Sex: Female
  Weight: 63.04 kg

DRUGS (4)
  1. INVELTYS [Suspect]
     Active Substance: LOTEPREDNOL ETABONATE
     Dosage: 1 DROP, 3X/DAY
     Route: 047
     Dates: start: 2019
  2. UNSPECIFED GLAUCOMA DROPS [Concomitant]
  3. INVELTYS [Suspect]
     Active Substance: LOTEPREDNOL ETABONATE
     Indication: PROPHYLAXIS AGAINST TRANSPLANT REJECTION
     Dosage: 1 DROP, 3X/DAY
     Route: 047
     Dates: start: 20190712, end: 2019
  4. UNSPECIFIED PILL [Concomitant]

REACTIONS (7)
  - Product dose omission [Recovered/Resolved]
  - Dry eye [Not Recovered/Not Resolved]
  - Intraocular pressure increased [Not Recovered/Not Resolved]
  - Off label use [Not Recovered/Not Resolved]
  - Incorrect product administration duration [Not Recovered/Not Resolved]
  - Inappropriate schedule of product administration [Not Recovered/Not Resolved]
  - Vision blurred [Not Recovered/Not Resolved]

NARRATIVE: CASE EVENT DATE: 2019
